FAERS Safety Report 9382752 (Version 1)
Quarter: 2013Q3

REPORT INFORMATION
  Report Type: Spontaneous
  Country: US (occurrence: US)
  Receive Date: 20130703
  Receipt Date: 20130703
  Transmission Date: 20140515
  Serious: Yes (Other)
  Sender: FDA-Public Use
  Company Number: US-ASTRAZENECA-2006UW17020

PATIENT
  Age: 79 Year
  Sex: Female
  Weight: 72.6 kg

DRUGS (8)
  1. CRESTOR [Suspect]
     Indication: BLOOD CHOLESTEROL INCREASED
     Route: 048
     Dates: start: 20060822, end: 20060825
  2. CRESTOR [Suspect]
     Indication: BLOOD CHOLESTEROL INCREASED
     Route: 048
  3. PULMICORT FLEXHALER [Suspect]
     Indication: ASTHMA
     Route: 055
     Dates: start: 20130524
  4. ZOLOFT [Concomitant]
  5. SEROQUEL [Concomitant]
     Route: 048
  6. SKELAXIN [Concomitant]
  7. ZITHROMAX [Concomitant]
  8. EXTRA STRENGTH TYLENOL [Concomitant]

REACTIONS (6)
  - Breast cancer [Unknown]
  - Herpes zoster [Unknown]
  - Asthma [Unknown]
  - Cystitis [Unknown]
  - Back pain [Unknown]
  - Insomnia [Recovered/Resolved]
